FAERS Safety Report 5484825-X (Version None)
Quarter: 2007Q4

REPORT INFORMATION
  Report Type: 
  Country: None (occurrence: None)
  Receive Date: 20071010
  Receipt Date: 20070927
  Transmission Date: 20080405
  Serious: Yes (Other)
  Sender: FDA-Public Use
  Company Number: T06-GER-05026-01

PATIENT
  Age: 40 Year
  Sex: Female

DRUGS (4)
  1. ESCITALOPRAM [Suspect]
     Indication: DEPRESSION
     Dosage: 20 MG QD PO
     Route: 048
     Dates: start: 20060118, end: 20060329
  2. ESCITALOPRAM [Suspect]
     Indication: GENERALISED ANXIETY DISORDER
     Dosage: 20 MG QD PO
     Route: 048
     Dates: start: 20060118, end: 20060329
  3. ESCITALOPRAM [Suspect]
     Indication: DEPRESSION
  4. ESCITALOPRAM [Suspect]
     Indication: GENERALISED ANXIETY DISORDER

REACTIONS (1)
  - VAGINAL HAEMORRHAGE [None]
